FAERS Safety Report 9927742 (Version 1)
Quarter: 2014Q1

REPORT INFORMATION
  Report Type: Spontaneous
  Country: US (occurrence: US)
  Receive Date: 20140227
  Receipt Date: 20140227
  Transmission Date: 20141002
  Serious: No
  Sender: FDA-Public Use
  Company Number: US-B.I. PHARMACEUTICALS,INC./RIDGEFIELD-2014-BI-07304BP

PATIENT
  Sex: Female

DRUGS (7)
  1. MOBIC [Suspect]
     Indication: PRODUCT USED FOR UNKNOWN INDICATION
     Route: 065
  2. HYDROCHLOROTHIAZIDE [Concomitant]
     Route: 048
  3. OXYCODONE-ACETAMINOPHEN (PERCOCET) [Concomitant]
     Dosage: DOSE PER APPLICATION: 7.5-325 MG
     Route: 048
  4. DULOXETINE [Concomitant]
     Route: 065
  5. CYCLOBENZAPRINE [Concomitant]
     Route: 065
  6. ALBUTEROL MDI [Concomitant]
     Route: 065
  7. PREGABALIN [Concomitant]
     Dosage: 150 MG
     Route: 048

REACTIONS (6)
  - Fibromyalgia [Unknown]
  - Back pain [Unknown]
  - Migraine [Unknown]
  - Depression [Unknown]
  - Anxiety [Unknown]
  - Fatigue [Unknown]
